FAERS Safety Report 4367347-9 (Version None)
Quarter: 2004Q2

REPORT INFORMATION
  Report Type: 
  Country: None (occurrence: None)
  Receive Date: 20040521
  Receipt Date: 20040514
  Transmission Date: 20050107
  Serious: Yes (Hospitalization)
  Sender: FDA-Public Use
  Company Number: F2003-00368

PATIENT
  Age: 34 Year
  Sex: Male

DRUGS (4)
  1. VACCIN GENHEVAC B PASTEUR (HEPATITIS B (CHO CELL) [Suspect]
     Indication: IMMUNISATION
     Dates: start: 19981204
  2. TYPHIM VI [Suspect]
     Indication: IMMUNISATION
     Dates: start: 19981204
  3. DT POLIO (DT-IPV (VERO)) (DIPHTHERIA, TETANUS AND POLIO VACCINE), AVEN [Suspect]
     Indication: IMMUNISATION
     Dates: start: 19981109
  4. TUBERCULINE PURIFIEE LYOPHILISEE POUR INTRADERMO-REACTION (TUBERCULIN [Suspect]
     Indication: TUBERCULIN TEST
     Dosage: I.D.
     Dates: start: 19981204

REACTIONS (6)
  - ANTIBODY TEST POSITIVE [None]
  - MULTIPLE SCLEROSIS [None]
  - MYOFASCITIS [None]
  - TRISMUS [None]
  - UPPER MOTOR NEURONE LESION [None]
  - WEIGHT DECREASED [None]
